FAERS Safety Report 13307111 (Version 1)
Quarter: 2017Q1

REPORT INFORMATION
  Report Type: Spontaneous
  Country: US (occurrence: US)
  Receive Date: 20170308
  Receipt Date: 20170308
  Transmission Date: 20170428
  Serious: No
  Sender: FDA-Public Use
  Company Number: US-B.I. PHARMACEUTICALS,INC./RIDGEFIELD-2017-BI-011975

PATIENT

DRUGS (1)
  1. PERSANTIN [Suspect]
     Active Substance: DIPYRIDAMOLE
     Indication: PRODUCT USED FOR UNKNOWN INDICATION
     Dosage: STRENGTH: 25 MG / 200 MG
     Route: 065

REACTIONS (1)
  - Drug dispensing error [Unknown]

NARRATIVE: CASE EVENT DATE: 201609
